FAERS Safety Report 13459624 (Version 3)
Quarter: 2017Q4

REPORT INFORMATION
  Report Type: Report from Study
  Country: None (occurrence: US)
  Receive Date: 20170419
  Receipt Date: 20171023
  Transmission Date: 20180320
  Serious: Yes (Other)
  Sender: FDA-Public Use
  Company Number: US-ABBVIE-17K-163-1944017-00

PATIENT
  Sex: Female
  Weight: 67.65 kg

DRUGS (6)
  1. GABAPENTIN. [Concomitant]
     Active Substance: GABAPENTIN
     Indication: NEURALGIA
  2. HUMIRA [Suspect]
     Active Substance: ADALIMUMAB
     Route: 058
     Dates: start: 20170501
  3. LIPITOR [Concomitant]
     Active Substance: ATORVASTATIN CALCIUM
     Indication: PRODUCT USED FOR UNKNOWN INDICATION
  4. BUDESONIDE. [Concomitant]
     Active Substance: BUDESONIDE
     Indication: PRODUCT USED FOR UNKNOWN INDICATION
  5. FOLIC ACID. [Concomitant]
     Active Substance: FOLIC ACID
     Indication: PRODUCT USED FOR UNKNOWN INDICATION
  6. HUMIRA [Suspect]
     Active Substance: ADALIMUMAB
     Indication: PSORIATIC ARTHROPATHY
     Route: 058
     Dates: start: 201604, end: 20170426

REACTIONS (16)
  - Spinal disorder [Not Recovered/Not Resolved]
  - Back disorder [Recovering/Resolving]
  - Viral infection [Not Recovered/Not Resolved]
  - Muscle spasms [Recovering/Resolving]
  - Nausea [Not Recovered/Not Resolved]
  - Osteoarthritis [Not Recovered/Not Resolved]
  - Gastrointestinal disorder [Recovering/Resolving]
  - Diarrhoea [Not Recovered/Not Resolved]
  - Injection site pain [Recovered/Resolved]
  - Rotator cuff syndrome [Recovering/Resolving]
  - Asthenia [Unknown]
  - Alopecia [Not Recovered/Not Resolved]
  - Pruritus allergic [Recovering/Resolving]
  - Back pain [Not Recovered/Not Resolved]
  - Injection site erythema [Recovered/Resolved]
  - Eye pruritus [Recovering/Resolving]

NARRATIVE: CASE EVENT DATE: 2016
